FAERS Safety Report 9536034 (Version 2)
Quarter: 2013Q4

REPORT INFORMATION
  Report Type: Spontaneous
  Country: US (occurrence: US)
  Receive Date: 20130919
  Receipt Date: 20131028
  Transmission Date: 20140711
  Serious: No
  Sender: FDA-Public Use
  Company Number: US-PFIZER INC-2013269864

PATIENT
  Sex: Female

DRUGS (2)
  1. NICOTROL INHALER [Suspect]
     Indication: SMOKING CESSATION THERAPY
     Dosage: UNK
     Route: 055
  2. NICOTROL INHALER [Suspect]
     Dosage: UNK
     Route: 055
     Dates: start: 20130905, end: 20130913

REACTIONS (4)
  - Drug ineffective [Unknown]
  - Feeling abnormal [Unknown]
  - Poor quality drug administered [Unknown]
  - Product quality issue [Unknown]
